FAERS Safety Report 7949348-4 (Version None)
Quarter: 2011Q4

REPORT INFORMATION
  Report Type: 
  Country: None (occurrence: None)
  Receive Date: 20111130
  Receipt Date: 20111122
  Transmission Date: 20120403
  Serious: Yes (Death)
  Sender: FDA-Public Use
  Company Number: US-GLAXOSMITHKLINE-A0744543A

PATIENT
  Age: 69 Year
  Sex: Female
  Weight: 95.5 kg

DRUGS (11)
  1. PAXIL [Concomitant]
  2. LUNESTA [Concomitant]
  3. LANTUS [Concomitant]
  4. ATENOLOL [Concomitant]
  5. ENALAPRIL MALEATE [Concomitant]
  6. AVANDIA [Suspect]
     Indication: TYPE 2 DIABETES MELLITUS
     Dosage: 8MG PER DAY
     Route: 048
     Dates: start: 20020501, end: 20070223
  7. DEPAKOTE [Concomitant]
  8. SEROQUEL [Concomitant]
  9. ARICEPT [Concomitant]
  10. AMARYL [Concomitant]
  11. EFFEXOR [Concomitant]

REACTIONS (2)
  - MYOCARDIAL INFARCTION [None]
  - ARTERIOSCLEROSIS [None]
